FAERS Safety Report 8847516 (Version 3)
Quarter: 2012Q4

REPORT INFORMATION
  Report Type: 
  Country: US (occurrence: US)
  Receive Date: 20121018
  Receipt Date: 20121221
  Transmission Date: 20130627
  Serious: No
  Sender: FDA-Public Use
  Company Number: US-VERTEX PHARMACEUTICAL INC.-2012-022736

PATIENT
  Age: 60 Year
  Sex: Male
  Weight: 90 kg

DRUGS (6)
  1. VX-950 (TELAPREVIR) [Suspect]
     Indication: HEPATITIS C
     Dosage: 750 mg, tid
     Route: 048
     Dates: start: 20120921
  2. RIBASPHERE [Suspect]
     Indication: HEPATITIS C
     Dosage: 600 mg, bid
     Route: 048
     Dates: start: 20120921
  3. PEGASYS [Suspect]
     Indication: HEPATITIS C
     Dosage: 180 ?g, weekly
     Route: 058
     Dates: start: 20120921
  4. TYLENOL /00020001/ [Concomitant]
     Dosage: UNK, prn
     Route: 048
  5. VITAMIN C                          /00008001/ [Concomitant]
     Dosage: 500 mg, qd
     Route: 048
  6. MULTIVITAMIN                       /00097801/ [Concomitant]
     Dosage: 1 DF, qd
     Route: 048

REACTIONS (4)
  - Dry skin [Unknown]
  - Fatigue [Unknown]
  - Anorectal discomfort [Unknown]
  - Drug ineffective [Unknown]
